FAERS Safety Report 25071885 (Version 2)
Quarter: 2025Q1

REPORT INFORMATION
  Report Type: Spontaneous
  Country: US (occurrence: US)
  Receive Date: 20250313
  Receipt Date: 20250314
  Transmission Date: 20250408
  Serious: No
  Sender: ABBVIE
  Company Number: US-ABBVIE-6172973

PATIENT
  Age: 39 Year
  Sex: Female
  Weight: 61 kg

DRUGS (2)
  1. LILETTA [Suspect]
     Active Substance: LEVONORGESTREL
     Indication: Product used for unknown indication
     Route: 015
     Dates: start: 20240314, end: 20240314
  2. Lo Loestsin Fe [Concomitant]
     Indication: Product used for unknown indication
     Route: 048

REACTIONS (4)
  - Abnormal uterine bleeding [Unknown]
  - Device expulsion [Unknown]
  - Dysmenorrhoea [Unknown]
  - Medical device discomfort [Unknown]

NARRATIVE: CASE EVENT DATE: 20250207
